FAERS Safety Report 5690908-1 (Version None)
Quarter: 2008Q2

REPORT INFORMATION
  Report Type: 
  Country: None (occurrence: None)
  Receive Date: 20080401
  Receipt Date: 20080321
  Transmission Date: 20081010
  Serious: Yes (Death)
  Sender: FDA-Public Use
  Company Number: US-ROCHE-554828

PATIENT
  Age: 55 Year
  Sex: Male
  Weight: 59.9 kg

DRUGS (4)
  1. CAPECITABINE [Suspect]
     Indication: METASTATIC GASTRIC CANCER
     Route: 048
     Dates: start: 20080306
  2. PLACEBO [Suspect]
     Indication: METASTATIC GASTRIC CANCER
     Dosage: DOSAGE FORM: INFUSION. FREQUENCY: QD
     Route: 042
     Dates: start: 20080306
  3. CISPLATIN [Suspect]
     Indication: METASTATIC GASTRIC CANCER
     Dosage: DOSAGE FORM: INFUSION. FREQUENCY: QD
     Route: 042
     Dates: start: 20080306
  4. MULTI-VITAMIN [Concomitant]

REACTIONS (1)
  - DEATH [None]
